FAERS Safety Report 22061780 (Version 1)
Quarter: 2023Q1

REPORT INFORMATION
  Report Type: Spontaneous
  Country: CN (occurrence: CN)
  Receive Date: 20230304
  Receipt Date: 20230304
  Transmission Date: 20230418
  Serious: Yes (Life-Threatening)
  Sender: FDA-Public Use
  Company Number: CN-002147023-NVSC2023CN049731

PATIENT
  Age: 1 Year
  Sex: Female
  Weight: 10 kg

DRUGS (1)
  1. TRILEPTAL [Suspect]
     Active Substance: OXCARBAZEPINE
     Indication: Epilepsy
     Dosage: 75 MG, BID
     Route: 048
     Dates: start: 20230207, end: 20230217

REACTIONS (6)
  - Platelet count decreased [Recovering/Resolving]
  - Rash [Recovering/Resolving]
  - Body temperature increased [Unknown]
  - Heart rate increased [Unknown]
  - Respiratory rate increased [Unknown]
  - Epilepsy [Unknown]

NARRATIVE: CASE EVENT DATE: 20230217
